FAERS Safety Report 20918760 (Version 1)
Quarter: 2022Q2

REPORT INFORMATION
  Report Type: Spontaneous
  Country: US (occurrence: US)
  Receive Date: 20220606
  Receipt Date: 20220606
  Transmission Date: 20220721
  Serious: Yes (Other)
  Sender: FDA-Public Use
  Company Number: US-BAYER-2022A075350

PATIENT
  Age: 21 Year
  Sex: Female

DRUGS (1)
  1. ASPIRIN [Suspect]
     Active Substance: ASPIRIN

REACTIONS (4)
  - Caesarean section [None]
  - Red blood cell transfusion [None]
  - Contraindicated product administered [None]
  - Maternal exposure during pregnancy [None]
